FAERS Safety Report 24277461 (Version 1)
Quarter: 2024Q3

REPORT INFORMATION
  Report Type: Spontaneous
  Country: DE (occurrence: DE)
  Receive Date: 20240903
  Receipt Date: 20240903
  Transmission Date: 20241016
  Serious: Yes (Other)
  Sender: MYLAN
  Company Number: DE-UCBSA-2024041560

PATIENT
  Age: 24 Year
  Sex: Female

DRUGS (15)
  1. EVEROLIMUS [Suspect]
     Active Substance: EVEROLIMUS
     Indication: Lennox-Gastaut syndrome
     Dosage: 5 MILLIGRAM
     Route: 065
  2. EVEROLIMUS [Suspect]
     Active Substance: EVEROLIMUS
     Indication: Tuberous sclerosis complex
  3. EVEROLIMUS [Suspect]
     Active Substance: EVEROLIMUS
     Indication: Seizure
  4. LACOSAMIDE [Suspect]
     Active Substance: LACOSAMIDE
     Indication: Lennox-Gastaut syndrome
     Dosage: UNK (ADDITIONAL DOSES OF LCM)
     Route: 065
  5. LACOSAMIDE [Suspect]
     Active Substance: LACOSAMIDE
     Indication: Tuberous sclerosis complex
     Dosage: 400 MILLIGRAM, QD (400 MILLIGRAM/DAY)
     Route: 065
  6. LACOSAMIDE [Suspect]
     Active Substance: LACOSAMIDE
     Indication: Seizure
  7. TOPIRAMATE [Suspect]
     Active Substance: TOPIRAMATE
     Indication: Lennox-Gastaut syndrome
     Dosage: 900 MILLIGRAM, QD (900 MILLIGRAM/DAY)
     Route: 065
  8. TOPIRAMATE [Suspect]
     Active Substance: TOPIRAMATE
     Indication: Tuberous sclerosis complex
  9. TOPIRAMATE [Suspect]
     Active Substance: TOPIRAMATE
     Indication: Status epilepticus
  10. FENFLURAMINE HYDROCHLORIDE [Suspect]
     Active Substance: FENFLURAMINE HYDROCHLORIDE
     Indication: Status epilepticus
     Dosage: 42 MILLIGRAM, QD (FFA DOSAGE WAS INCREASED TO A PEAK DOSE, NASOGASTRIC)
     Route: 065
  11. FENFLURAMINE HYDROCHLORIDE [Suspect]
     Active Substance: FENFLURAMINE HYDROCHLORIDE
     Indication: Lennox-Gastaut syndrome
     Dosage: UNK (NASOGASTRIC)
     Route: 065
     Dates: start: 2022
  12. FENFLURAMINE HYDROCHLORIDE [Suspect]
     Active Substance: FENFLURAMINE HYDROCHLORIDE
     Indication: Tuberous sclerosis complex
     Dosage: 21 MILLIGRAM, QD (21 MILLIGRAM/DAY, NASOGASTRIC)
     Route: 065
  13. PHENOBARBITAL [Suspect]
     Active Substance: PHENOBARBITAL
     Indication: Lennox-Gastaut syndrome
     Dosage: 200 MILLIGRAM, QD (200 MILLIGRAM/DAY)
     Route: 065
  14. PHENOBARBITAL [Suspect]
     Active Substance: PHENOBARBITAL
     Indication: Status epilepticus
     Dosage: UNK (ADDITIONAL DOSES OF PB)
     Route: 065
  15. PHENOBARBITAL [Suspect]
     Active Substance: PHENOBARBITAL
     Indication: Tuberous sclerosis complex

REACTIONS (5)
  - Seizure [Unknown]
  - Pyrexia [Not Recovered/Not Resolved]
  - Multiple-drug resistance [Unknown]
  - Off label use [Unknown]
  - Prescribed overdose [Unknown]
